FAERS Safety Report 5581548-3 (Version None)
Quarter: 2008Q1

REPORT INFORMATION
  Report Type: 
  Country: None (occurrence: None)
  Receive Date: 20080104
  Receipt Date: 20080102
  Transmission Date: 20080703
  Serious: Yes (Hospitalization, Disabling)
  Sender: FDA-Public Use
  Company Number: GB-BAYER-200711318BNE

PATIENT
  Age: 41 Year
  Sex: Female
  Weight: 68 kg

DRUGS (1)
  1. CIPROFLOXACIN [Suspect]
     Indication: URINARY TRACT INFECTION
     Dosage: TOTAL DAILY DOSE: 1000 MG  UNIT DOSE: 500 MG
     Route: 048
     Dates: start: 20070110, end: 20070114

REACTIONS (10)
  - ARTHRALGIA [None]
  - ARTHRITIS REACTIVE [None]
  - BACK PAIN [None]
  - BLINDNESS [None]
  - EYE DISCHARGE [None]
  - EYE INFLAMMATION [None]
  - HYPERSENSITIVITY [None]
  - OSTEITIS [None]
  - PAIN IN EXTREMITY [None]
  - SWELLING [None]
